FAERS Safety Report 4802777-X (Version None)
Quarter: 2005Q4

REPORT INFORMATION
  Report Type: 
  Country: None (occurrence: None)
  Receive Date: 20051019
  Receipt Date: 20050922
  Transmission Date: 20060501
  Serious: Yes (Other)
  Sender: FDA-Public Use
  Company Number: PHBS2005IL14433

PATIENT
  Age: 75 Year
  Sex: Male

DRUGS (1)
  1. AREDIA [Suspect]
     Indication: MULTIPLE MYELOMA
     Route: 042

REACTIONS (7)
  - BACTERIAL INFECTION [None]
  - BONE DEBRIDEMENT [None]
  - EXCESSIVE GRANULATION TISSUE [None]
  - FUNGAL INFECTION [None]
  - OSTEOMYELITIS [None]
  - OSTEONECROSIS [None]
  - WOUND TREATMENT [None]
